FAERS Safety Report 6965853-1 (Version None)
Quarter: 2010Q3

REPORT INFORMATION
  Report Type: 
  Country: None (occurrence: None)
  Receive Date: 20100903
  Receipt Date: 20100826
  Transmission Date: 20110219
  Serious: No
  Sender: FDA-Public Use
  Company Number: US-US-EMD SERONO, INC.-7015873

PATIENT
  Sex: Male

DRUGS (1)
  1. REBIF [Suspect]
     Indication: PRODUCT USED FOR UNKNOWN INDICATION
     Dates: start: 20091002, end: 20100301

REACTIONS (2)
  - BLOOD TESTOSTERONE DECREASED [None]
  - PROSTATIC SPECIFIC ANTIGEN INCREASED [None]
